FAERS Safety Report 6458730-6 (Version None)
Quarter: 2009Q4

REPORT INFORMATION
  Report Type: 
  Country: None (occurrence: None)
  Receive Date: 20091127
  Receipt Date: 20091103
  Transmission Date: 20100525
  Serious: No
  Sender: FDA-Public Use
  Company Number: US-ROCHE-667495

PATIENT
  Age: 6 Month
  Sex: Male

DRUGS (1)
  1. TAMIFLU [Suspect]
     Dosage: STRENGTH : 12 MG/ML
     Route: 048
     Dates: start: 20091101, end: 20091102

REACTIONS (2)
  - NO ADVERSE EVENT [None]
  - POOR QUALITY DRUG ADMINISTERED [None]
